FAERS Safety Report 6313407-2 (Version None)
Quarter: 2009Q3

REPORT INFORMATION
  Report Type: 
  Country: None (occurrence: None)
  Receive Date: 20090814
  Receipt Date: 20090814
  Transmission Date: 20100115
  Serious: Yes (Life-Threatening)
  Sender: FDA-Public Use
  Company Number: None

PATIENT
  Age: 66 Year
  Sex: Male
  Weight: 77.1115 kg

DRUGS (1)
  1. LEVAQUIN [Suspect]
     Indication: URINARY TRACT INFECTION
     Dosage: 1 TABLET 1/DAY PO
     Route: 048
     Dates: start: 20090801, end: 20090815

REACTIONS (7)
  - CHILLS [None]
  - DYSPNOEA [None]
  - FAECAL INCONTINENCE [None]
  - RETCHING [None]
  - TREMOR [None]
  - URINARY INCONTINENCE [None]
  - VOMITING [None]
